FAERS Safety Report 7402090-0 (Version None)
Quarter: 2011Q2

REPORT INFORMATION
  Report Type: 
  Country: None (occurrence: None)
  Receive Date: 20110408
  Receipt Date: 20110315
  Transmission Date: 20111010
  Serious: No
  Sender: FDA-Public Use
  Company Number: US-B.I. PHARMACEUTICALS,INC./RIDGEFIELD-2010-BP-13967BP

PATIENT
  Sex: Female

DRUGS (12)
  1. SYNTHROID [Concomitant]
     Indication: HYPOTHYROIDISM
     Route: 048
  2. MULTIVITAMIN [Concomitant]
     Indication: PROPHYLAXIS
  3. ISOSORBIDE DINITRATE [Concomitant]
     Indication: CHEST PAIN
  4. PRADAXA [Suspect]
     Indication: ATRIAL FIBRILLATION
     Dosage: 300 MG
     Route: 048
     Dates: start: 20101101, end: 20110310
  5. CARDIZEM [Concomitant]
     Indication: ATRIAL FIBRILLATION
  6. FOLIC ACID [Concomitant]
     Indication: PROPHYLAXIS
  7. PLAVIX [Concomitant]
     Indication: CORONARY ARTERIAL STENT INSERTION
     Route: 048
  8. CRESTOR [Concomitant]
     Indication: BLOOD CHOLESTEROL INCREASED
     Route: 048
  9. ATENOLOL [Concomitant]
     Indication: HYPERTENSION
     Route: 048
  10. ASA (BABY) [Concomitant]
     Indication: CORONARY ARTERIAL STENT INSERTION
     Dosage: 81 MG
     Route: 048
  11. DIOVAN [Concomitant]
     Indication: HYPERTENSION
     Route: 048
  12. MULTIVITAMIN [Concomitant]
     Indication: SUPPLEMENTATION THERAPY
     Route: 048

REACTIONS (5)
  - RASH [None]
  - RECTAL HAEMORRHAGE [None]
  - DYSPEPSIA [None]
  - OEDEMA PERIPHERAL [None]
  - DIZZINESS [None]
